FAERS Safety Report 8939113 (Version 1)
Quarter: 2012Q4

REPORT INFORMATION
  Report Type: 
  Country: US (occurrence: US)
  Receive Date: 20121203
  Receipt Date: 20121203
  Transmission Date: 20130627
  Serious: No
  Sender: FDA-Public Use
  Company Number: US-PFIZER INC-2012301353

PATIENT
  Age: 66 Year
  Sex: Female
  Weight: 92.97 kg

DRUGS (2)
  1. EFFEXOR XR [Suspect]
     Indication: DEPRESSION
     Dosage: 75 mg, 2x/day
     Route: 048
  2. TRIAVIL [Concomitant]
     Dosage: UNK, 1x/day
     Route: 048

REACTIONS (2)
  - Amnesia [Not Recovered/Not Resolved]
  - Headache [Not Recovered/Not Resolved]
